FAERS Safety Report 6677870-X (Version None)
Quarter: 2010Q2

REPORT INFORMATION
  Report Type: 
  Country: None (occurrence: None)
  Receive Date: 20100412
  Receipt Date: 20100316
  Transmission Date: 20101027
  Serious: Yes (Hospitalization)
  Sender: FDA-Public Use
  Company Number: DE-ALEXION-A201000309

PATIENT

DRUGS (5)
  1. SOLIRIS [Suspect]
     Indication: PAROXYSMAL NOCTURNAL HAEMOGLOBINURIA
     Dosage: SHEPHERD STUDY
     Dates: start: 20050501
  2. SOLIRIS [Suspect]
     Dosage: 900 MG, Q14D
     Route: 042
     Dates: start: 20071101
  3. FOLSAN [Concomitant]
     Indication: APLASTIC ANAEMIA
     Dosage: 5 MG, UNK
     Route: 048
  4. EPOGEN [Concomitant]
     Indication: APLASTIC ANAEMIA
     Dosage: 300 UG, QW
     Route: 058
  5. DESOGESTREL [Concomitant]
     Indication: CONTRACEPTION
     Dosage: 0.075 MG, UNK
     Route: 048

REACTIONS (2)
  - HAEMOLYSIS [None]
  - PSEUDOMEMBRANOUS COLITIS [None]
